FAERS Safety Report 8338895-1 (Version None)
Quarter: 2012Q2

REPORT INFORMATION
  Report Type: 
  Country: None (occurrence: None)
  Receive Date: 20120506
  Receipt Date: 20120411
  Transmission Date: 20120825
  Serious: Yes (Other)
  Sender: FDA-Public Use
  Company Number: PHHY2012EC034129

PATIENT
  Sex: Female

DRUGS (2)
  1. DIOVAN HCT [Suspect]
     Indication: HYPERTENSION
     Dosage: 1 DF, QD(80 MG VALAAND 12. MG HYDRO)
     Route: 048
     Dates: start: 20080101
  2. FUROSEMIDE [Concomitant]
     Dosage: 1 DF,  DAILY

REACTIONS (4)
  - VISUAL IMPAIRMENT [None]
  - CATARACT [None]
  - PRURITUS [None]
  - EYE PAIN [None]
